FAERS Safety Report 25994077 (Version 1)
Quarter: 2025Q4

REPORT INFORMATION
  Report Type: Spontaneous
  Country: MX (occurrence: MX)
  Receive Date: 20251104
  Receipt Date: 20251104
  Transmission Date: 20260118
  Serious: No
  Sender: ANI
  Company Number: MX-ANIPHARMA-031037

PATIENT
  Age: 67 Year
  Sex: Female

DRUGS (9)
  1. FLUVOXAMINE MALEATE [Suspect]
     Active Substance: FLUVOXAMINE MALEATE
     Indication: Depression
     Dosage: STRENGTH: 100MG, QUARTER OF TABLET
     Dates: start: 20250924
  2. CLONAZEPAM [Concomitant]
     Active Substance: CLONAZEPAM
     Indication: Anxiety
     Route: 048
  3. FLUVOXAMINE MALEATE [Suspect]
     Active Substance: FLUVOXAMINE MALEATE
     Indication: Bipolar disorder
     Dosage: STRENGTH: 100MG, QUARTER OF A TABLET
     Dates: start: 20250924
  4. FLUVOXAMINE MALEATE [Suspect]
     Active Substance: FLUVOXAMINE MALEATE
     Indication: Depression
     Dosage: STRENGTH: 100MG, HALF A TABLET
  5. FLUVOXAMINE MALEATE [Suspect]
     Active Substance: FLUVOXAMINE MALEATE
     Indication: Bipolar disorder
     Dosage: STRENGTH: 100MG, HALF A TABLET
  6. FLUVOXAMINE MALEATE [Suspect]
     Active Substance: FLUVOXAMINE MALEATE
     Indication: Depression
     Dosage: STRENGTH: 100MG, THREE QUARTERS OF?A TABLET
  7. FLUVOXAMINE MALEATE [Suspect]
     Active Substance: FLUVOXAMINE MALEATE
     Indication: Bipolar disorder
     Dosage: STRENGTH: 100MG, THREE QUARTERS OF?A TABLET
  8. FLUVOXAMINE MALEATE [Suspect]
     Active Substance: FLUVOXAMINE MALEATE
     Indication: Depression
     Dosage: STRENGTH: 100MG, ONE TABLET
  9. FLUVOXAMINE MALEATE [Suspect]
     Active Substance: FLUVOXAMINE MALEATE
     Indication: Bipolar disorder
     Dosage: STRENGTH: 100MG, ONE TABLET

REACTIONS (4)
  - Blister [Recovered/Resolved]
  - Pruritus [Recovered/Resolved]
  - Off label use [Unknown]
  - Wrong technique in product usage process [Unknown]

NARRATIVE: CASE EVENT DATE: 20250924
